FAERS Safety Report 8062562-5 (Version None)
Quarter: 2012Q1

REPORT INFORMATION
  Report Type: 
  Country: None (occurrence: None)
  Receive Date: 20120123
  Receipt Date: 20120116
  Transmission Date: 20120608
  Serious: Yes (Hospitalization)
  Sender: FDA-Public Use
  Company Number: JP-SANOFI-AVENTIS-2011SA084221

PATIENT
  Age: 71 Year
  Sex: Male

DRUGS (3)
  1. ALLEGRA [Suspect]
     Dosage: STRENGTH: 60 MG
     Route: 065
     Dates: start: 20101222, end: 20111212
  2. MICARDIS [Suspect]
     Route: 065
     Dates: end: 20111212
  3. CARVEDILOL [Suspect]
     Route: 065
     Dates: end: 20111212

REACTIONS (1)
  - PANCYTOPENIA [None]
